FAERS Safety Report 6068164-4 (Version None)
Quarter: 2009Q1

REPORT INFORMATION
  Report Type: 
  Country: None (occurrence: None)
  Receive Date: 20090206
  Receipt Date: 20090127
  Transmission Date: 20090719
  Serious: Yes (Hospitalization)
  Sender: FDA-Public Use
  Company Number: FR-PFIZER INC-2009162584

PATIENT

DRUGS (11)
  1. ALDACTONE [Suspect]
     Route: 048
     Dates: end: 20081226
  2. MEMANTINE HYDROCHLORIDE [Suspect]
     Indication: DEMENTIA ALZHEIMER'S TYPE
     Route: 048
     Dates: start: 20081121, end: 20081226
  3. ATHYMIL [Suspect]
     Route: 048
     Dates: start: 20081121, end: 20081226
  4. ARICEPT [Concomitant]
     Dosage: 10 MG, 1X/DAY
     Route: 048
     Dates: start: 20081121
  5. FOSAMAX [Concomitant]
     Dosage: 70 MG, WEEKLY
     Route: 048
     Dates: start: 20081121
  6. COZAAR [Concomitant]
     Dosage: 50 MG, 1X/DAY
     Route: 048
  7. IMOVANE [Concomitant]
     Dosage: 7.5 MG, 1X/DAY
     Route: 048
  8. PARIET [Concomitant]
     Dosage: 10 MG, 1X/DAY
     Route: 048
  9. ACETAMINOPHEN AND CODEINE PHOSPHATE [Concomitant]
     Dosage: UNK
     Route: 048
  10. NULYTELY [Concomitant]
     Dosage: UNK
     Route: 048
  11. LIPANTHYL [Concomitant]
     Dosage: 145 MG, 1X/DAY
     Route: 048

REACTIONS (1)
  - GRAND MAL CONVULSION [None]
